FAERS Safety Report 9294103 (Version 1)
Quarter: 2013Q2

REPORT INFORMATION
  Report Type: Spontaneous
  Country: US (occurrence: None)
  Receive Date: 20130516
  Receipt Date: 20130516
  Transmission Date: 20140414
  Serious: Yes (Death)
  Sender: FDA-Public Use
  Company Number: None

PATIENT
  Age: 3 Year
  Sex: Female
  Weight: 13.4 kg

DRUGS (2)
  1. DAUNORUBICIN [Suspect]
     Dates: end: 20120703
  2. MITOXANTRONE HYDROCHLORIDE [Suspect]
     Dates: end: 20120904

REACTIONS (3)
  - Cardiomyopathy [None]
  - Device occlusion [None]
  - Cardio-respiratory arrest [None]
